FAERS Safety Report 7430904-7 (Version None)
Quarter: 2011Q2

REPORT INFORMATION
  Report Type: 
  Country: None (occurrence: None)
  Receive Date: 20110421
  Receipt Date: 20110404
  Transmission Date: 20111010
  Serious: No
  Sender: FDA-Public Use
  Company Number: US-B.I. PHARMACEUTICALS,INC./RIDGEFIELD-2011-BP-09914BP

PATIENT
  Age: 86 Year
  Sex: Female

DRUGS (8)
  1. SYNTHROID [Concomitant]
     Indication: THYROID DISORDER
  2. SIMVASTATIN [Concomitant]
     Indication: BLOOD CHOLESTEROL INCREASED
  3. CITALOPRAM HYDROBROMIDE [Concomitant]
  4. LASIX [Concomitant]
     Indication: CARDIAC FAILURE CONGESTIVE
  5. DIGOXIN [Concomitant]
     Indication: ATRIAL FIBRILLATION
  6. ASPIRIN [Concomitant]
     Indication: ATRIAL FIBRILLATION
  7. PRADAXA [Suspect]
     Indication: ATRIAL FIBRILLATION
     Dosage: 300 MG
     Route: 048
     Dates: start: 20110301
  8. ATENOLOL [Concomitant]
     Indication: HYPERTENSION

REACTIONS (1)
  - THROAT IRRITATION [None]
